FAERS Safety Report 24759273 (Version 1)
Quarter: 2024Q4

REPORT INFORMATION
  Report Type: Spontaneous
  Country: GB (occurrence: GB)
  Receive Date: 20241220
  Receipt Date: 20241220
  Transmission Date: 20250114
  Serious: Yes (Hospitalization, Other)
  Sender: RANBAXY
  Company Number: GB-SUN PHARMACEUTICAL INDUSTRIES LTD-2024RR-484869

PATIENT
  Age: 89 Year
  Sex: Male
  Weight: 84 kg

DRUGS (10)
  1. TADALAFIL [Suspect]
     Active Substance: TADALAFIL
     Indication: Product used for unknown indication
     Dosage: TAKE ONE ONCE DAILY - PRIVATE TREATMENT
     Route: 048
     Dates: start: 20220411, end: 20241130
  2. ANUSOL NOS [Concomitant]
     Active Substance: BALSAM PERU\BENZYL BENZOATE\BISMUTH HYDROXIDE\BISMUTH SUBGALLATE\HYDROCORTISONE ACETATE\ZINC OXIDE
     Indication: Product used for unknown indication
     Dosage: APPLY TWICE A DAY AND EVERY TIME AFTER OPENING
     Route: 065
     Dates: start: 20241001, end: 20241008
  3. HONEY [Concomitant]
     Active Substance: HONEY
     Indication: Product used for unknown indication
     Dosage: APPLY TO BROKEN OR VULNERABLE SKIN AFTER PERSON
     Route: 065
     Dates: start: 20241122
  4. ZERODERM [Concomitant]
     Indication: Ill-defined disorder
     Dosage: APPLY TO THE AFFECTED AREA(S) TWICE A DAY
     Route: 065
     Dates: start: 20230711
  5. ASPIRIN [Concomitant]
     Active Substance: ASPIRIN
     Indication: Product used for unknown indication
     Dosage: TAKE ONE TABLET ONCE A DAY WITH OR AFTER FOOD 75MG ONCE A DAY
     Route: 065
     Dates: start: 20240610
  6. ATORVASTATIN [Concomitant]
     Active Substance: ATORVASTATIN
     Indication: Product used for unknown indication
     Dosage: TAKE ONE TABLET ONCE A DAY  40MG ONCE A DAY
     Route: 065
     Dates: start: 20240610
  7. DUTASTERIDE [Concomitant]
     Active Substance: DUTASTERIDE
     Indication: Product used for unknown indication
     Dosage: TAKE ONE CAPSULE ONCE A DAY 500MCG ONCE A DAY
     Route: 065
     Dates: start: 20240610
  8. MACROGOL COMPOUND [Concomitant]
     Indication: Product used for unknown indication
     Dosage: TAKE ONE SACHET ONCE OR TWICE A DAY TO ACHIEVE
     Route: 065
     Dates: start: 20240610
  9. UREA [Concomitant]
     Active Substance: UREA
     Indication: Product used for unknown indication
     Dosage: APPLY DAILY AS DIRECTED BY DERMATOLOGIST
     Route: 065
     Dates: start: 20240610
  10. LATANOPROST [Concomitant]
     Active Substance: LATANOPROST
     Indication: Product used for unknown indication
     Dosage: PUT ONE DROP INTO BOTH EYES  EACH EVENING
     Route: 065
     Dates: start: 20240819

REACTIONS (2)
  - Orthostatic hypotension [Unknown]
  - Dizziness [Unknown]

NARRATIVE: CASE EVENT DATE: 20241129
